FAERS Safety Report 18592179 (Version 2)
Quarter: 2021Q2

REPORT INFORMATION
  Report Type: Report from Study
  Country: DE (occurrence: DE)
  Receive Date: 20201209
  Receipt Date: 20210421
  Transmission Date: 20210717
  Serious: Yes (Hospitalization)
  Sender: FDA-Public Use
  Company Number: DE-PFIZER INC-2020476268

PATIENT
  Age: 68 Year
  Sex: Female

DRUGS (8)
  1. CALCILAC [CALCIUM LACTATE] [Concomitant]
  2. DEKRISTOL [Concomitant]
     Active Substance: CHOLECALCIFEROL
  3. RISEDRONIC ACID [Concomitant]
     Active Substance: RISEDRONIC ACID
  4. XELJANZ [Suspect]
     Active Substance: TOFACITINIB CITRATE
     Dosage: UNK
     Dates: end: 20200702
  5. PREDNISOLONE. [Concomitant]
     Active Substance: PREDNISOLONE
  6. NO SUBJECT DRUG [Suspect]
     Active Substance: UNSPECIFIED INGREDIENT
     Dosage: NO DOSE GIVEN
  7. CITALOPRAM [Concomitant]
     Active Substance: CITALOPRAM HYDROBROMIDE
  8. DICLOFENAC [Concomitant]
     Active Substance: DICLOFENAC

REACTIONS (2)
  - Post procedural infection [Recovered/Resolved]
  - Foot fracture [Recovered/Resolved]

NARRATIVE: CASE EVENT DATE: 20200614
